FAERS Safety Report 14942777 (Version 2)
Quarter: 2018Q2

REPORT INFORMATION
  Report Type: Spontaneous
  Country: TW (occurrence: TW)
  Receive Date: 20180528
  Receipt Date: 20180607
  Transmission Date: 20180711
  Serious: Yes (Death, Hospitalization)
  Sender: FDA-Public Use
  Company Number: TW-ROCHE-2130357

PATIENT
  Age: 81 Year
  Sex: Female

DRUGS (7)
  1. SALAZINE [Concomitant]
     Active Substance: SULFASALAZINE
     Route: 048
  2. FENOFIBRATE. [Concomitant]
     Active Substance: FENOFIBRATE
     Route: 048
  3. ACTEMRA [Suspect]
     Active Substance: TOCILIZUMAB
     Indication: RHEUMATOID ARTHRITIS
     Route: 058
     Dates: start: 20170927
  4. METHOTREXATE. [Concomitant]
     Active Substance: METHOTREXATE
  5. HYDROXYCHLOROQUINE [Concomitant]
     Active Substance: HYDROXYCHLOROQUINE
     Route: 048
  6. ARCOXIA [Concomitant]
     Active Substance: ETORICOXIB
     Route: 048
  7. PITAVASTATIN. [Concomitant]
     Active Substance: PITAVASTATIN CALCIUM
     Dosage: 0.5 HS
     Route: 048

REACTIONS (7)
  - Decreased appetite [Unknown]
  - Pleural effusion [Unknown]
  - Hepatic cirrhosis [Fatal]
  - Duodenal ulcer [Unknown]
  - Diverticulum intestinal [Unknown]
  - Dysuria [Unknown]
  - Ascites [Unknown]

NARRATIVE: CASE EVENT DATE: 20180510
